FAERS Safety Report 17559229 (Version 1)
Quarter: 2020Q1

REPORT INFORMATION
  Report Type: Spontaneous
  Country: US (occurrence: US)
  Receive Date: 20200319
  Receipt Date: 20200319
  Transmission Date: 20200409
  Serious: Yes (Life-Threatening, Hospitalization, Other)
  Sender: FDA-Public Use
  Company Number: US-AUROBINDO-AUR-APL-2020-004430

PATIENT
  Age: 46 Year
  Sex: Female
  Weight: 64 kg

DRUGS (3)
  1. UNITHROID [Concomitant]
     Active Substance: LEVOTHYROXINE SODIUM
     Indication: PRODUCT USED FOR UNKNOWN INDICATION
     Dosage: UNK
     Route: 065
  2. SULFAMETHOXAZOLE AND TRIMETHOPRIM TABLETS USP 800/160 MG [Suspect]
     Active Substance: SULFAMETHOXAZOLE\TRIMETHOPRIM
     Indication: CELLULITIS
     Dosage: 2 DOSAGE FORM, DAILY
     Route: 065
     Dates: start: 20190605
  3. SULFAMETHOXAZOLE AND TRIMETHOPRIM TABLETS USP 800/160 MG [Suspect]
     Active Substance: SULFAMETHOXAZOLE\TRIMETHOPRIM
     Dosage: 4 DOSAGE FORM, ONCE A DAY
     Route: 065
     Dates: start: 20190610

REACTIONS (7)
  - Internal haemorrhage [Recovered/Resolved]
  - Ocular hyperaemia [Recovered/Resolved]
  - Petechiae [Recovered/Resolved]
  - Angina bullosa haemorrhagica [Recovered/Resolved]
  - Contusion [Recovered/Resolved]
  - Immune thrombocytopenic purpura [Recovered/Resolved]
  - Pulmonary embolism [Recovered/Resolved]

NARRATIVE: CASE EVENT DATE: 201906
